FAERS Safety Report 8432728 (Version 2)
Quarter: 2014Q1

REPORT INFORMATION
  Report Type: Spontaneous
  Country: US (occurrence: US)
  Receive Date: 20120229
  Receipt Date: 20140306
  Transmission Date: 20141002
  Serious: Yes (Hospitalization, Other)
  Sender: FDA-Public Use
  Company Number: US-US-EMD SERONO, INC.-7114756

PATIENT
  Sex: Female

DRUGS (1)
  1. REBIF [Suspect]
     Indication: MULTIPLE SCLEROSIS
     Route: 058
     Dates: start: 20090223

REACTIONS (6)
  - Cardiac output decreased [Recovering/Resolving]
  - Ejection fraction decreased [Unknown]
  - Dysuria [Recovered/Resolved]
  - Gastrointestinal motility disorder [Unknown]
  - Blindness unilateral [Unknown]
  - Multiple sclerosis relapse [Unknown]
